FAERS Safety Report 15660114 (Version 1)
Quarter: 2018Q4

REPORT INFORMATION
  Report Type: Spontaneous
  Country: FR (occurrence: FR)
  Receive Date: 20181127
  Receipt Date: 20181127
  Transmission Date: 20190205
  Serious: Yes (Other)
  Sender: FDA-Public Use
  Company Number: FR-ASTRAZENECA-2018SF54552

PATIENT
  Age: 76 Year
  Sex: Female

DRUGS (4)
  1. OMEPRAZOLE. [Suspect]
     Active Substance: OMEPRAZOLE
     Route: 048
     Dates: start: 20181029
  2. TOCO [Concomitant]
     Active Substance: UNSPECIFIED INGREDIENT
  3. XELODA [Concomitant]
     Active Substance: CAPECITABINE
  4. ADANCOR [Concomitant]
     Active Substance: NICORANDIL

REACTIONS (7)
  - Pain in extremity [Unknown]
  - Lip dry [Unknown]
  - Diarrhoea haemorrhagic [Unknown]
  - Abdominal pain upper [Unknown]
  - Chills [Unknown]
  - Heart rate increased [Unknown]
  - Eye swelling [Unknown]
